FAERS Safety Report 8835469 (Version 1)
Quarter: 2012Q4

REPORT INFORMATION
  Report Type: 
  Country: IT (occurrence: IT)
  Receive Date: 20121011
  Receipt Date: 20121011
  Transmission Date: 20130627
  Serious: Yes (Other)
  Sender: FDA-Public Use
  Company Number: PHHY2012IT089638

PATIENT
  Age: 32 Year
  Sex: Male

DRUGS (3)
  1. CERTICAN [Suspect]
     Indication: LIVER TRANSPLANT
     Dosage: 1.5 mg, QD
  2. CERTICAN [Suspect]
     Dosage: UNK UKN, UNK
  3. MYCOPHENOLATE SODIUM [Suspect]
     Indication: LIVER TRANSPLANT
     Dosage: 1080 mg, QD

REACTIONS (4)
  - Eyelid oedema [Unknown]
  - Oedema peripheral [Unknown]
  - Gamma-glutamyltransferase increased [Unknown]
  - Glomerular filtration rate increased [Unknown]
